FAERS Safety Report 9704057 (Version 2)
Quarter: 2013Q4

REPORT INFORMATION
  Report Type: Spontaneous
  Country: US (occurrence: US)
  Receive Date: 20131122
  Receipt Date: 20131216
  Transmission Date: 20140711
  Serious: Yes (Hospitalization)
  Sender: FDA-Public Use
  Company Number: US-PFIZER INC-2013330810

PATIENT
  Age: 44 Year
  Sex: Female
  Weight: 92.97 kg

DRUGS (4)
  1. FLAGYL [Suspect]
     Indication: INFECTION
     Dosage: 1 DF, 1X/DAY
     Route: 048
     Dates: start: 2008
  2. METRONIDAZOLE [Suspect]
     Indication: INFECTION
     Dosage: UNK
     Dates: start: 2008
  3. REBIF [Concomitant]
     Indication: MULTIPLE SCLEROSIS
     Dosage: UNK, EVERY ALTERNATE DAY
  4. INTERFERON [Concomitant]
     Indication: MULTIPLE SCLEROSIS
     Dosage: UNK, EVERY ALTERNATE DAY

REACTIONS (9)
  - Cardiac discomfort [Unknown]
  - Malaise [Unknown]
  - Dyspnoea [Not Recovered/Not Resolved]
  - Pulmonary hypertension [Unknown]
  - Memory impairment [Unknown]
  - Cardiac murmur [Unknown]
  - Urticaria [Recovered/Resolved]
  - Muscle spasms [Recovered/Resolved]
  - Pruritus [Recovered/Resolved]
